FAERS Safety Report 4809850-0 (Version None)
Quarter: 2005Q4

REPORT INFORMATION
  Report Type: 
  Country: None (occurrence: None)
  Receive Date: 20051024
  Receipt Date: 20051024
  Transmission Date: 20060501
  Serious: Yes (Death)
  Sender: FDA-Public Use
  Company Number: None

PATIENT
  Age: 62 Year
  Sex: Male
  Weight: 82.4 kg

DRUGS (12)
  1. RITUXAN [Suspect]
     Indication: NON-HODGKIN'S LYMPHOMA REFRACTORY
     Dosage: 713 MG EVERY 21 DAYS IV
     Route: 042
     Dates: start: 20050909, end: 20050909
  2. GALLIUM NITRATE  GENTA INCORPORATED [Suspect]
     Indication: NON-HODGKIN'S LYMPHOMA REFRACTORY
     Dosage: 380 MG X 7DAYS  EVERY 21 DAYS IV
     Route: 042
     Dates: start: 20050909, end: 20050915
  3. METOCLOPRAMIDE [Concomitant]
  4. ALLOPURINOL [Concomitant]
  5. HYDROMORPHONE [Concomitant]
  6. LASIX [Concomitant]
  7. FENTANYL [Concomitant]
  8. PANTOPRAZOLE [Concomitant]
  9. WARFARIN [Concomitant]
  10. LORAZEPAM [Concomitant]
  11. MULTI-VITAMIN [Concomitant]
  12. DOCUSATE [Concomitant]

REACTIONS (7)
  - ABDOMINAL DISTENSION [None]
  - DYSPHAGIA [None]
  - DYSPNOEA [None]
  - FLUID OVERLOAD [None]
  - GENERAL PHYSICAL HEALTH DETERIORATION [None]
  - GENERALISED OEDEMA [None]
  - OEDEMA PERIPHERAL [None]
